FAERS Safety Report 10228377 (Version 1)
Quarter: 2014Q1

REPORT INFORMATION
  Report Type: Spontaneous
  Country: US (occurrence: None)
  Receive Date: 20140306
  Receipt Date: 20140306
  Transmission Date: 20141002
  Serious: Yes (Other)
  Sender: FDA-Public Use
  Company Number: 163-21880-13052865

PATIENT
  Age: 62 Year
  Sex: Female

DRUGS (20)
  1. REVLIMID (LENALIDOMIDE) (25 MILLIGRAM, CAPSULES) [Suspect]
     Indication: PLASMA CELL MYELOMA
     Route: 048
     Dates: start: 200906
  2. PANTOPRAZOLE (PANTOPRAZOLE) [Concomitant]
  3. AMLODIPINE (AMLODIPINE) [Concomitant]
  4. GRANISETRON (GRANISETRON) [Concomitant]
  5. DEXAMETHASONE(DEXAMETHASONE) [Concomitant]
  6. ZYRTEC(CETIRIZINE HYDROCHLORIDE) [Concomitant]
  7. BENADRYL(DIPHENHYDRAMINE HYDROCHLORIDE) [Concomitant]
  8. SUDAFED(PSEUDOEPHEDRINE HYDROCHLORIDE) [Concomitant]
  9. AFRIN(OXYMETAZOLINE HYDROCHLORIDE) [Concomitant]
  10. SALINE NASAL SPRAY (SODIUM CHLORIDE)(NASAL DROPS INCLUDING NASAL SPRAY) [Concomitant]
  11. DIAZEPAM(DIAZEPAM) (DIAZEPAM) [Concomitant]
  12. METOPROLOL(METOPROLOL) [Concomitant]
  13. WARFARIN(WARFARIN) [Concomitant]
  14. OXYCODONE(OXYCODONE) [Concomitant]
  15. MIRALAX(MACROGOL) [Concomitant]
  16. VIT D (ERGOCALCIFEROL) [Concomitant]
  17. COLACE (DOCUSATE SODIUM) [Concomitant]
  18. GAS RELIEFT(DIMETICONE, ACTIVATED) [Concomitant]
  19. TYLENOL(PARACETAMOL) [Concomitant]
  20. COUMADIN (WARFARIN SODIUM) [Concomitant]

REACTIONS (1)
  - Thrombosis [None]
